FAERS Safety Report 8134391-5 (Version None)
Quarter: 2012Q1

REPORT INFORMATION
  Report Type: 
  Country: None (occurrence: None)
  Receive Date: 20120209
  Receipt Date: 20120131
  Transmission Date: 20120608
  Serious: Yes (Other)
  Sender: FDA-Public Use
  Company Number: AXC-2011-000542

PATIENT

DRUGS (4)
  1. URSODIOL [Suspect]
     Indication: FOETAL EXPOSURE DURING PREGNANCY
     Dosage: 600 MG, QD, TRANSPLACENTAL
     Route: 064
  2. MAGNESIUM SULFATE [Concomitant]
  3. GLYCYRRHIZIC ACID (GLYCYRRHIZIC ACID) [Suspect]
     Indication: FOETAL EXPOSURE DURING PREGNANCY
     Dosage: 60 MG, QD, UNK
  4. PREDNISOLONE [Suspect]
     Indication: FOETAL EXPOSURE DURING PREGNANCY
     Dosage: 60 MG, QD, TRANSPLACENTAL, 10 MG, QD, TRANSPLACENTAL, 25 MG, QD, TRANSPLACENTAL
     Route: 064

REACTIONS (4)
  - APGAR SCORE LOW [None]
  - LOW BIRTH WEIGHT BABY [None]
  - FOETAL EXPOSURE DURING PREGNANCY [None]
  - MATERNAL DRUGS AFFECTING FOETUS [None]
